FAERS Safety Report 19164008 (Version 3)
Quarter: 2021Q2

REPORT INFORMATION
  Report Type: Spontaneous
  Country: IN (occurrence: IN)
  Receive Date: 20210421
  Receipt Date: 20210610
  Transmission Date: 20210717
  Serious: Yes (Hospitalization)
  Sender: FDA-Public Use
  Company Number: IN-PFIZER INC-2021393577

PATIENT
  Age: 59 Year
  Sex: Female

DRUGS (8)
  1. PALBACE [Suspect]
     Active Substance: PALBOCICLIB
     Dosage: 125 MG, CYCLIC (DAY1?DAY21, THEN 7 DAYS GAP)
  2. PALBACE [Suspect]
     Active Substance: PALBOCICLIB
     Dosage: 125 MG, CYCLIC (DAY1?DAY21, THEN 7 DAYS GAP)
     Dates: start: 20210322
  3. IMODIUM [Concomitant]
     Active Substance: LOPERAMIDE HYDROCHLORIDE
     Indication: DIARRHOEA
     Dosage: 2 MG PRN
  4. ULTRACET [Concomitant]
     Active Substance: ACETAMINOPHEN\TRAMADOL HYDROCHLORIDE
     Dosage: 1 TAB TWICE DAILY
  5. SHELCAL [CALCIUM;COLECALCIFEROL] [Concomitant]
     Active Substance: CALCIUM\CHOLECALCIFEROL
     Dosage: 500 MG, TWICE A DAY
  6. ZOLDONAT [Concomitant]
     Dosage: 4 MG IN 100 ML NS OVER 30 MIN
  7. LETROZOLE. [Concomitant]
     Active Substance: LETROZOLE
     Indication: BREAST CANCER
     Dosage: 2.5 MG ONCE DAILY
     Dates: start: 20210123
  8. PALBACE [Suspect]
     Active Substance: PALBOCICLIB
     Indication: BREAST CANCER METASTATIC
     Dosage: 125 MG, 1X/DAY
     Route: 048
     Dates: start: 20210223

REACTIONS (3)
  - Heart rate increased [Unknown]
  - Hypercalcaemia [Unknown]
  - Blood pressure increased [Unknown]

NARRATIVE: CASE EVENT DATE: 20210521
